FAERS Safety Report 9353478 (Version 1)
Quarter: 2013Q2

REPORT INFORMATION
  Report Type: Spontaneous
  Country: IT (occurrence: IT)
  Receive Date: 20130618
  Receipt Date: 20130618
  Transmission Date: 20140414
  Serious: Yes (Other)
  Sender: FDA-Public Use
  Company Number: IT-ASTRAZENECA-2013SE41000

PATIENT
  Age: 26930 Day
  Sex: Female

DRUGS (1)
  1. LIDOCAINE [Suspect]
     Indication: ARTHRALGIA
     Route: 014
     Dates: start: 20130503, end: 20130503

REACTIONS (3)
  - Abdominal pain upper [Recovered/Resolved]
  - Laryngeal oedema [Recovered/Resolved]
  - Dyspnoea [Recovered/Resolved]
